FAERS Safety Report 13731636 (Version 1)
Quarter: 2017Q3

REPORT INFORMATION
  Report Type: Spontaneous
  Country: ES (occurrence: ES)
  Receive Date: 20170707
  Receipt Date: 20170707
  Transmission Date: 20171127
  Serious: Yes (Death, Other)
  Sender: FDA-Public Use
  Company Number: ES-CELGENEUS-144-21660-14091400

PATIENT

DRUGS (2)
  1. ABRAXANE [Suspect]
     Active Substance: PACLITAXEL
     Indication: PANCREATIC CARCINOMA METASTATIC
     Route: 041
  2. GEMCITABINE [Concomitant]
     Active Substance: GEMCITABINE\GEMCITABINE HYDROCHLORIDE
     Indication: PANCREATIC CARCINOMA METASTATIC
     Dosage: 107.1429 MICROGRAM/SQ. METER
     Route: 065

REACTIONS (10)
  - Anaemia [Unknown]
  - Mucosal inflammation [Unknown]
  - Nausea [Unknown]
  - Pancreatic carcinoma [Fatal]
  - Asthenia [Unknown]
  - Neutropenia [Unknown]
  - Neurotoxicity [Unknown]
  - Thrombocytopenia [Unknown]
  - Vomiting [Unknown]
  - Diarrhoea [Unknown]
